FAERS Safety Report 6095718-1 (Version None)
Quarter: 2009Q1

REPORT INFORMATION
  Report Type: 
  Country: None (occurrence: None)
  Receive Date: 20090227
  Receipt Date: 20080801
  Transmission Date: 20090719
  Serious: No
  Sender: FDA-Public Use
  Company Number: A0730339A

PATIENT
  Age: 56 Year
  Sex: Female

DRUGS (3)
  1. LAMICTAL [Suspect]
     Indication: BIPOLAR DISORDER
     Dosage: 100MG PER DAY
     Route: 048
     Dates: start: 20080201
  2. HORMONE REPLACEMENT THERAPY [Concomitant]
  3. WELLBUTRIN [Concomitant]

REACTIONS (5)
  - EXERCISE TOLERANCE DECREASED [None]
  - HYPOTONIA [None]
  - MENSTRUAL DISORDER [None]
  - MUSCULAR WEAKNESS [None]
  - THINKING ABNORMAL [None]
